FAERS Safety Report 13887952 (Version 1)
Quarter: 2017Q3

REPORT INFORMATION
  Report Type: Spontaneous
  Country: FR (occurrence: FR)
  Receive Date: 20170821
  Receipt Date: 20170821
  Transmission Date: 20171127
  Serious: Yes (Other)
  Sender: FDA-Public Use
  Company Number: FR-TEVA-797718ROM

PATIENT
  Age: 75 Year
  Sex: Female

DRUGS (2)
  1. ASPEGIC [Concomitant]
     Active Substance: ASPIRIN DL-LYSINE
  2. IBUPROFENE TEVA 200 MG [Suspect]
     Active Substance: IBUPROFEN
     Indication: PERICARDITIS
     Dosage: 6 DOSAGE FORMS DAILY;
     Route: 048
     Dates: start: 201705, end: 201705

REACTIONS (1)
  - Urinary retention [Not Recovered/Not Resolved]

NARRATIVE: CASE EVENT DATE: 201705
